FAERS Safety Report 11056161 (Version 1)
Quarter: 2015Q2

REPORT INFORMATION
  Report Type: Spontaneous
  Country: US (occurrence: US)
  Receive Date: 20150422
  Receipt Date: 20150422
  Transmission Date: 20150821
  Serious: No
  Sender: FDA-Public Use
  Company Number: US-TEVA-556272USA

PATIENT
  Age: 10 Year

DRUGS (1)
  1. QVAR [Suspect]
     Active Substance: BECLOMETHASONE DIPROPIONATE
     Indication: PRODUCT USED FOR UNKNOWN INDICATION
     Dosage: 1 PUFF BID
     Route: 055

REACTIONS (4)
  - Wheezing [Unknown]
  - Drug ineffective [Unknown]
  - Nasal congestion [Unknown]
  - Asthma [Unknown]
